FAERS Safety Report 13077913 (Version 1)
Quarter: 2017Q1

REPORT INFORMATION
  Report Type: Spontaneous
  Country: US (occurrence: US)
  Receive Date: 20170102
  Receipt Date: 20170102
  Transmission Date: 20170428
  Serious: Yes (Death, Hospitalization)
  Sender: FDA-Public Use
  Company Number: US-ASTRAZENECA-2016SF37721

PATIENT
  Age: 50 Year
  Sex: Male

DRUGS (20)
  1. OLANZAPINE. [Suspect]
     Active Substance: OLANZAPINE
     Route: 048
  2. CLONIDINE. [Suspect]
     Active Substance: CLONIDINE
     Route: 048
  3. ALPHA BLOCKER [Suspect]
     Active Substance: UNSPECIFIED INGREDIENT
     Route: 048
  4. GLIPIZIDE. [Suspect]
     Active Substance: GLIPIZIDE
     Route: 048
  5. DOXEPIN [Suspect]
     Active Substance: DOXEPIN
     Route: 048
  6. AMFETAMINE [Suspect]
     Active Substance: AMPHETAMINE
     Route: 048
  7. GLIMEPIRIDE. [Suspect]
     Active Substance: GLIMEPIRIDE
     Route: 048
  8. HALOPERIDOL. [Suspect]
     Active Substance: HALOPERIDOL
     Route: 048
  9. VENLAFAXINE [Suspect]
     Active Substance: VENLAFAXINE HYDROCHLORIDE
     Route: 048
  10. CLONAZEPAM. [Suspect]
     Active Substance: CLONAZEPAM
     Route: 048
  11. TEMAZEPAM. [Suspect]
     Active Substance: TEMAZEPAM
     Route: 048
  12. LORAZEPAM. [Suspect]
     Active Substance: LORAZEPAM
     Route: 048
  13. FLUOXETINE [Suspect]
     Active Substance: FLUOXETINE HYDROCHLORIDE
     Route: 048
  14. CYCLOBENZAPRINE [Suspect]
     Active Substance: CYCLOBENZAPRINE
     Route: 048
  15. QUETIAPINE. [Suspect]
     Active Substance: QUETIAPINE
     Route: 048
  16. BUPROPION. [Suspect]
     Active Substance: BUPROPION
     Route: 048
  17. LISINOPRIL. [Suspect]
     Active Substance: LISINOPRIL
     Route: 048
  18. DULOXETINE. [Suspect]
     Active Substance: DULOXETINE
     Route: 048
  19. METHYLPHENIDATE. [Suspect]
     Active Substance: METHYLPHENIDATE
     Route: 048
  20. CHLORPROMAZINE. [Suspect]
     Active Substance: CHLORPROMAZINE
     Route: 048

REACTIONS (2)
  - Toxicity to various agents [Fatal]
  - Completed suicide [Fatal]
